FAERS Safety Report 6998775-0 (Version None)
Quarter: 2010Q3

REPORT INFORMATION
  Report Type: 
  Country: None (occurrence: None)
  Receive Date: 20100920
  Receipt Date: 20100609
  Transmission Date: 20110219
  Serious: No
  Sender: FDA-Public Use
  Company Number: US-ASTRAZENECA-2010SE26780

PATIENT
  Age: 88 Year
  Sex: Female
  Weight: 72.6 kg

DRUGS (1)
  1. SEROQUEL [Suspect]
     Indication: DEMENTIA ALZHEIMER'S TYPE
     Route: 048
     Dates: start: 20100430

REACTIONS (13)
  - BODY TEMPERATURE FLUCTUATION [None]
  - CHOKING [None]
  - COUGH [None]
  - DECREASED APPETITE [None]
  - DYSGEUSIA [None]
  - DYSPHAGIA [None]
  - DYSPHEMIA [None]
  - GAIT DISTURBANCE [None]
  - SEDATION [None]
  - TONGUE PARALYSIS [None]
  - TREMOR [None]
  - URINARY TRACT INFECTION [None]
  - WEIGHT INCREASED [None]
